FAERS Safety Report 4870422-3 (Version None)
Quarter: 2006Q1

REPORT INFORMATION
  Report Type: 
  Country: None (occurrence: None)
  Receive Date: 20060103
  Receipt Date: 20050126
  Transmission Date: 20060701
  Serious: No
  Sender: FDA-Public Use
  Company Number: US-BRISTOL-MYERS SQUIBB COMPANY-12840021

PATIENT
  Age: 52 Year
  Sex: Female
  Weight: 82 kg

DRUGS (8)
  1. DESYREL [Suspect]
     Indication: DEPRESSION
     Dosage: DURATION OF THERAPY:  ^A WHILE^
     Route: 048
  2. DESYREL [Suspect]
     Indication: SLEEP DISORDER
     Dosage: DURATION OF THERAPY:  ^A WHILE^
     Route: 048
  3. LEXAPRO [Suspect]
  4. TOPROL-XL [Concomitant]
  5. LIPITOR [Concomitant]
  6. LOPID [Concomitant]
  7. FIORICET [Concomitant]
  8. LORTAB [Concomitant]

REACTIONS (1)
  - DIZZINESS [None]
